FAERS Safety Report 21590385 (Version 2)
Quarter: 2023Q1

REPORT INFORMATION
  Report Type: Report from Study
  Country: US (occurrence: US)
  Receive Date: 20221114
  Receipt Date: 20230110
  Transmission Date: 20230417
  Serious: No
  Sender: FDA-Public Use
  Company Number: US-ABBVIE-4155545

PATIENT
  Sex: Female

DRUGS (2)
  1. HUMIRA [Suspect]
     Active Substance: ADALIMUMAB
     Indication: Psoriatic arthropathy
     Dosage: CITRATE FREE
     Route: 058
  2. JANSSEN COVID-19 VACCINE [Concomitant]
     Active Substance: AD26.COV2.S
     Indication: COVID-19 immunisation
     Dosage: ONE IN ONCE?JOHNSON + JOHNSON
     Route: 030

REACTIONS (13)
  - Skin exfoliation [Not Recovered/Not Resolved]
  - Injection site pain [Not Recovered/Not Resolved]
  - Inflammation [Recovered/Resolved]
  - Skin plaque [Not Recovered/Not Resolved]
  - COVID-19 [Unknown]
  - Injection site bruising [Not Recovered/Not Resolved]
  - Back pain [Unknown]
  - Musculoskeletal stiffness [Unknown]
  - Therapeutic product effect incomplete [Unknown]
  - Arthralgia [Unknown]
  - Eye inflammation [Unknown]
  - Eye pruritus [Unknown]
  - Ocular hyperaemia [Unknown]
